FAERS Safety Report 4820676-4 (Version None)
Quarter: 2005Q4

REPORT INFORMATION
  Report Type: 
  Country: None (occurrence: None)
  Receive Date: 20051104
  Receipt Date: 20051026
  Transmission Date: 20060501
  Serious: Yes (Hospitalization)
  Sender: FDA-Public Use
  Company Number: FR-JNJFOC-20051001599

PATIENT
  Age: 31 Year
  Sex: Female
  Weight: 88 kg

DRUGS (3)
  1. EPITOMAX [Suspect]
     Indication: EPILEPSY
     Dosage: TREATMENT INITIATED IN EARLY 2005.
     Route: 048
  2. NEXIUM [Suspect]
     Route: 065
  3. NEXIUM [Suspect]
     Indication: EPIGLOTTITIS
     Route: 065

REACTIONS (1)
  - HEPATITIS [None]
